FAERS Safety Report 8871053 (Version 1)
Quarter: 2012Q4

REPORT INFORMATION
  Report Type: Spontaneous
  Country: US (occurrence: None)
  Receive Date: 20121026
  Receipt Date: 20121026
  Transmission Date: 20130627
  Serious: Yes (Life-Threatening)
  Sender: FDA-Public Use
  Company Number: None

PATIENT
  Age: 81 Year
  Sex: Male
  Weight: 87.09 kg

DRUGS (1)
  1. VESICARE [Suspect]
     Route: 048
     Dates: start: 20121024, end: 20121224

REACTIONS (10)
  - Oral discomfort [None]
  - Glossodynia [None]
  - Nasal discomfort [None]
  - Throat irritation [None]
  - Parosmia [None]
  - Dysgeusia [None]
  - Drug ineffective [None]
  - Salivary hypersecretion [None]
  - Cough [None]
  - Oropharyngeal pain [None]
